FAERS Safety Report 6383599-8 (Version None)
Quarter: 2009Q3

REPORT INFORMATION
  Report Type: 
  Country: None (occurrence: None)
  Receive Date: 20090929
  Receipt Date: 20090929
  Transmission Date: 20100115
  Serious: No
  Sender: FDA-Public Use
  Company Number: None

PATIENT
  Age: 90 Year
  Sex: Male
  Weight: 57.73 kg

DRUGS (1)
  1. ACYCLOVIR [Suspect]
     Dosage: 330 MG EVERY DAY IV
     Route: 042
     Dates: start: 20090125, end: 20090127

REACTIONS (2)
  - SOMNOLENCE [None]
  - UNRESPONSIVE TO STIMULI [None]
